FAERS Safety Report 15228170 (Version 2)
Quarter: 2020Q3

REPORT INFORMATION
  Report Type: Spontaneous
  Country: NZ (occurrence: NZ)
  Receive Date: 20180801
  Receipt Date: 20181207
  Transmission Date: 20201105
  Serious: Yes (Death, Life-Threatening, Hospitalization, Other)
  Sender: FDA-Public Use
  Company Number: NZ-SA-2018SA165403

PATIENT
  Age: 5 Month
  Sex: Male

DRUGS (9)
  1. ADENOSINE. [Suspect]
     Active Substance: ADENOSINE
     Indication: ATRIAL FIBRILLATION
     Route: 042
  2. GENTAMICIN SULFATE. [Suspect]
     Active Substance: GENTAMICIN SULFATE
     Indication: PRODUCT USED FOR UNKNOWN INDICATION
     Dosage: UNK
     Route: 042
  3. TACROLIMUS. [Suspect]
     Active Substance: TACROLIMUS
     Indication: IMMUNOSUPPRESSANT DRUG THERAPY
  4. CEFOTAXIME SODIUM [Suspect]
     Active Substance: CEFOTAXIME SODIUM
     Indication: PRODUCT USED FOR UNKNOWN INDICATION
     Dosage: UNK
  5. AMOXICILLIN. [Suspect]
     Active Substance: AMOXICILLIN
     Indication: PYREXIA
     Dosage: UNK
     Route: 042
  6. METHYLPREDNISOLONE. [Suspect]
     Active Substance: METHYLPREDNISOLONE
     Indication: IMMUNOSUPPRESSION
  7. ADENOSINE. [Suspect]
     Active Substance: ADENOSINE
     Indication: PYREXIA
  8. AMIKACIN. [Suspect]
     Active Substance: AMIKACIN
     Indication: PRODUCT USED FOR UNKNOWN INDICATION
  9. AMPHOTERICIN [Concomitant]
     Active Substance: AMPHOTERICIN B
     Indication: PROPHYLAXIS
     Dosage: LIPOSOMAL

REACTIONS (8)
  - Portal vein thrombosis [Unknown]
  - Condition aggravated [Fatal]
  - Hepatic failure [Unknown]
  - Off label use [Unknown]
  - Hyperammonaemia [Fatal]
  - Serratia infection [Fatal]
  - Gastric varices haemorrhage [Unknown]
  - Atrial fibrillation [Unknown]
